FAERS Safety Report 4451484-4 (Version None)
Quarter: 2004Q3

REPORT INFORMATION
  Report Type: 
  Country: None (occurrence: None)
  Receive Date: 20040916
  Receipt Date: 20040906
  Transmission Date: 20050211
  Serious: Yes (Death, Other)
  Sender: FDA-Public Use
  Company Number: NO-BRISTOL-MYERS SQUIBB COMPANY-12699443

PATIENT
  Age: 71 Year
  Sex: Female

DRUGS (7)
  1. GLUCOPHAGE [Suspect]
     Indication: DIABETES MELLITUS NON-INSULIN-DEPENDENT
     Route: 048
     Dates: start: 20000101, end: 20040802
  2. BACTRIM [Suspect]
     Indication: URINARY TRACT INFECTION
     Route: 048
     Dates: start: 20040726
  3. LACTULOSE (GEN) [Concomitant]
     Indication: CONSTIPATION
     Route: 048
     Dates: end: 20040802
  4. SOBRIL [Concomitant]
     Route: 048
  5. ALBYL-E [Concomitant]
     Indication: CARDIOVASCULAR DISORDER
     Route: 048
     Dates: end: 20040802
  6. FUROSEMIDE [Concomitant]
     Indication: HYPERTENSION
     Route: 048
     Dates: end: 20040802
  7. ATACAND [Concomitant]
     Indication: HYPERTENSION
     Route: 048
     Dates: end: 20040802

REACTIONS (5)
  - ANAPHYLACTIC REACTION [None]
  - LACTIC ACIDOSIS [None]
  - MULTI-ORGAN FAILURE [None]
  - PULMONARY OEDEMA [None]
  - RENAL FAILURE ACUTE [None]
